FAERS Safety Report 6027215-3 (Version None)
Quarter: 2008Q4

REPORT INFORMATION
  Report Type: 
  Country: None (occurrence: None)
  Receive Date: 20081222
  Receipt Date: 20081121
  Transmission Date: 20090506
  Serious: No
  Sender: FDA-Public Use
  Company Number: US-WYE-H06936708

PATIENT
  Age: 42 Year
  Sex: Male

DRUGS (3)
  1. PRISTIQ [Suspect]
     Indication: DEPRESSION
     Dosage: 50 MG 1X PER 1 DAY, ORAL
     Route: 048
     Dates: start: 20081101
  2. DETROL [Concomitant]
  3. PERCOCET (OXYCODONE HYDROCHLORIDE/OXYCODONE HYDROCHLORIDE/PARACETAMOL) [Concomitant]

REACTIONS (1)
  - DYSURIA [None]
